FAERS Safety Report 19519435 (Version 1)
Quarter: 2021Q3

REPORT INFORMATION
  Report Type: Spontaneous
  Country: US (occurrence: US)
  Receive Date: 20210712
  Receipt Date: 20210712
  Transmission Date: 20211014
  Serious: Yes (Other)
  Sender: FDA-Public Use
  Company Number: None

PATIENT
  Age: 72 Year
  Sex: Female
  Weight: 46.72 kg

DRUGS (6)
  1. MIRALAX [Concomitant]
     Active Substance: POLYETHYLENE GLYCOL 3350
  2. NEXIUM [Concomitant]
     Active Substance: ESOMEPRAZOLE MAGNESIUM
  3. AMITRIPTYLINE [Concomitant]
     Active Substance: AMITRIPTYLINE
  4. TYLENOL [Concomitant]
     Active Substance: ACETAMINOPHEN
  5. ALEVE [Concomitant]
     Active Substance: NAPROXEN SODIUM
  6. REPATHA [Suspect]
     Active Substance: EVOLOCUMAB
     Indication: BLOOD CHOLESTEROL INCREASED
     Dosage: ?          QUANTITY:2 DF DOSAGE FORM;?
     Route: 058
     Dates: start: 20210625, end: 20210627

REACTIONS (3)
  - Bladder pain [None]
  - Cystitis interstitial [None]
  - Drug intolerance [None]

NARRATIVE: CASE EVENT DATE: 20210625
